FAERS Safety Report 9914044 (Version 1)
Quarter: 2014Q1

REPORT INFORMATION
  Report Type: Spontaneous
  Country: GB (occurrence: GB)
  Receive Date: 20140220
  Receipt Date: 20140220
  Transmission Date: 20141002
  Serious: Yes (Other)
  Sender: FDA-Public Use
  Company Number: GB-GLAXOSMITHKLINE-B0968604A

PATIENT
  Age: 71 Year
  Sex: Female

DRUGS (4)
  1. ALLI [Suspect]
     Indication: PRODUCT USED FOR UNKNOWN INDICATION
     Route: 065
  2. WARFARIN [Concomitant]
  3. METFORMIN [Concomitant]
  4. STATINS [Concomitant]

REACTIONS (3)
  - Diabetes mellitus [Unknown]
  - Surgery [Unknown]
  - General physical health deterioration [Unknown]
